FAERS Safety Report 7864716-7 (Version None)
Quarter: 2011Q4

REPORT INFORMATION
  Report Type: 
  Country: None (occurrence: None)
  Receive Date: 20111028
  Receipt Date: 20111026
  Transmission Date: 20120403
  Serious: Yes (Other)
  Sender: FDA-Public Use
  Company Number: JP-PFIZER INC-2011260246

PATIENT
  Age: 26 Year
  Sex: Male

DRUGS (2)
  1. AMOXAPINE [Suspect]
     Indication: DEPRESSION
  2. ZOLOFT [Suspect]
     Indication: DEPRESSION

REACTIONS (1)
  - INTRAOCULAR PRESSURE INCREASED [None]
